FAERS Safety Report 7268492-0 (Version None)
Quarter: 2011Q1

REPORT INFORMATION
  Report Type: 
  Country: None (occurrence: None)
  Receive Date: 20110201
  Receipt Date: 20110128
  Transmission Date: 20110831
  Serious: Yes (Disabling, Other)
  Sender: FDA-Public Use
  Company Number: US-CEPHALON-2010006346

PATIENT
  Sex: Female
  Weight: 64 kg

DRUGS (1)
  1. TREANDA [Suspect]
     Indication: B-CELL LYMPHOMA
     Route: 042
     Dates: start: 20100908, end: 20101111

REACTIONS (1)
  - CRANIAL NERVE PALSIES MULTIPLE [None]
